FAERS Safety Report 23154116 (Version 2)
Quarter: 2023Q4

REPORT INFORMATION
  Report Type: Spontaneous
  Country: DE (occurrence: DE)
  Receive Date: 20231107
  Receipt Date: 20231120
  Transmission Date: 20240109
  Serious: Yes (Hospitalization, Other)
  Sender: FDA-Public Use
  Company Number: DE-BoehringerIngelheim-2023-BI-271128

PATIENT
  Age: 57 Year
  Sex: Male
  Weight: 120 kg

DRUGS (5)
  1. JARDIANCE [Suspect]
     Active Substance: EMPAGLIFLOZIN
     Indication: Dilated cardiomyopathy
     Route: 048
     Dates: start: 20230711, end: 20231030
  2. JARDIANCE [Suspect]
     Active Substance: EMPAGLIFLOZIN
     Indication: Type 2 diabetes mellitus
  3. ENTRESTO [Concomitant]
     Active Substance: SACUBITRIL\VALSARTAN
     Indication: Dilated cardiomyopathy
     Dosage: DAILY DOSE 49/51
     Route: 048
     Dates: start: 20230901
  4. EPLERENONE [Concomitant]
     Active Substance: EPLERENONE
     Indication: Dilated cardiomyopathy
     Route: 048
     Dates: start: 20230901
  5. TORSEMIDE [Concomitant]
     Active Substance: TORSEMIDE
     Indication: Dilated cardiomyopathy
     Route: 048
     Dates: start: 20230901

REACTIONS (2)
  - Fournier^s gangrene [Not Recovered/Not Resolved]
  - Decubitus ulcer [Unknown]

NARRATIVE: CASE EVENT DATE: 20230901
